FAERS Safety Report 8623231-3 (Version None)
Quarter: 2012Q3

REPORT INFORMATION
  Report Type: 
  Country: None (occurrence: None)
  Receive Date: 20120827
  Receipt Date: 20120818
  Transmission Date: 20120928
  Serious: Yes (Hospitalization, Other)
  Sender: FDA-Public Use
  Company Number: US-US-EMD SERONO, INC.-7155919

PATIENT
  Sex: Female

DRUGS (2)
  1. REBIF [Suspect]
     Indication: MULTIPLE SCLEROSIS
     Route: 058
     Dates: start: 20060517, end: 20061205
  2. REBIF [Suspect]
     Route: 058
     Dates: start: 20071005, end: 20120701

REACTIONS (7)
  - ENCEPHALOPATHY [None]
  - NEURALGIA [None]
  - MULTIPLE SCLEROSIS [None]
  - BLOOD PRESSURE INCREASED [None]
  - URINARY TRACT INFECTION [None]
  - INJECTION SITE INFECTION [None]
  - PYREXIA [None]
